FAERS Safety Report 8553082-X (Version None)
Quarter: 2012Q3

REPORT INFORMATION
  Report Type: 
  Country: None (occurrence: None)
  Receive Date: 20120731
  Receipt Date: 20120716
  Transmission Date: 20120928
  Serious: Yes (Other)
  Sender: FDA-Public Use
  Company Number: DE-UCBSA-058615

PATIENT
  Sex: Male

DRUGS (44)
  1. PREDNISOLONE [Concomitant]
     Dates: start: 20080121, end: 20080205
  2. PREDNISOLONE [Concomitant]
     Dates: start: 20101101, end: 20101101
  3. PREDNISOLONE [Concomitant]
     Dates: start: 20101224, end: 20110107
  4. PREDNISOLONE [Concomitant]
     Dates: start: 20110207, end: 20110401
  5. PREDNISOLONE [Concomitant]
     Dates: start: 20111129, end: 20111201
  6. ASPIRIN [Concomitant]
     Indication: CEREBRAL ISCHAEMIA
     Dates: start: 20120227
  7. INSULIN [Concomitant]
     Indication: DIABETES MELLITUS
     Dosage: 12 IE
     Dates: start: 20120301
  8. PREDNISOLONE [Concomitant]
     Indication: RHEUMATOID ARTHRITIS
     Dates: start: 20070328, end: 20070420
  9. PREDNISOLONE [Concomitant]
     Dates: start: 20101101, end: 20101101
  10. PREDNISOLONE [Concomitant]
     Dates: start: 20101224, end: 20110107
  11. PREDNISOLONE [Concomitant]
     Dates: start: 20110207, end: 20110401
  12. PREDNISOLONE [Concomitant]
     Dates: start: 20120306, end: 20120406
  13. PREDNISOLONE [Concomitant]
     Dates: start: 20120306, end: 20120406
  14. GLIMEPIRID [Concomitant]
     Indication: DIABETES MELLITUS
     Dates: start: 20100301
  15. PREDNISOLONE [Concomitant]
     Dates: start: 20090331, end: 20090414
  16. PREDNISOLONE [Concomitant]
     Dates: start: 20110207, end: 20110401
  17. PREDNISOLONE [Concomitant]
     Dates: start: 20110601, end: 20110701
  18. OFLOXACIN [Concomitant]
     Indication: BRONCHITIS
     Dates: start: 20111129, end: 20111203
  19. LEVOTHYROXINE SODIUM [Concomitant]
     Indication: HYPOTHYROIDISM
     Dates: start: 20100301
  20. PREDNISOLONE [Concomitant]
     Indication: HYPERSENSITIVITY
     Dates: start: 20070328, end: 20070420
  21. PREDNISOLONE [Concomitant]
     Dates: start: 20110601, end: 20110701
  22. PREDNISOLONE [Concomitant]
     Dates: start: 20111129, end: 20111201
  23. OMEPRAZOLE [Concomitant]
     Indication: GASTRITIS
     Dates: start: 20090204
  24. CIMZIA [Suspect]
     Indication: RHEUMATOID ARTHRITIS
     Dates: start: 20110622, end: 20111127
  25. DICLOFENAC [Concomitant]
     Indication: RHEUMATOID ARTHRITIS
     Dates: start: 20020502
  26. PREDNISOLONE [Concomitant]
     Dates: start: 20090331, end: 20090414
  27. PREDNISOLONE [Concomitant]
     Dates: start: 20090331, end: 20090414
  28. PREDNISOLONE [Concomitant]
     Dates: start: 20111129, end: 20111201
  29. PREDNISOLONE [Concomitant]
     Dates: start: 20120306, end: 20120406
  30. PREDNISOLONE [Concomitant]
     Dates: start: 20080121, end: 20080205
  31. PREDNISOLONE [Concomitant]
     Dates: start: 20101215, end: 20101215
  32. PREDNISOLONE [Concomitant]
     Dates: start: 20101224, end: 20110107
  33. PREDNISOLONE [Concomitant]
     Dates: start: 20120407
  34. PREDNISOLONE [Concomitant]
     Dates: start: 20120407
  35. PREDNISOLONE [Concomitant]
     Indication: MUSCULOSKELETAL PAIN
     Dates: start: 20070328, end: 20070420
  36. PREDNISOLONE [Concomitant]
     Dates: start: 20080121, end: 20080205
  37. PREDNISOLONE [Concomitant]
     Dates: start: 20101215, end: 20101215
  38. PREDNISOLONE [Concomitant]
     Dates: start: 20110601, end: 20110701
  39. ACETYLCYSTEINE [Concomitant]
     Indication: PULMONARY FIBROSIS
     Dates: start: 20120306
  40. DIPYRONE TAB [Concomitant]
     Indication: RHEUMATOID ARTHRITIS
     Dates: start: 20100603
  41. METFORMIN HYDROCHLORIDE [Concomitant]
     Indication: DIABETES MELLITUS
     Dates: start: 20100301, end: 20120301
  42. PREDNISOLONE [Concomitant]
     Dates: start: 20101101, end: 20101101
  43. PREDNISOLONE [Concomitant]
     Dates: start: 20101215, end: 20101215
  44. PREDNISOLONE [Concomitant]
     Dates: start: 20120407

REACTIONS (3)
  - PULMONARY FIBROSIS [None]
  - CEREBRAL ISCHAEMIA [None]
  - ATRIAL FIBRILLATION [None]
